FAERS Safety Report 14752848 (Version 5)
Quarter: 2018Q2

REPORT INFORMATION
  Report Type: Spontaneous
  Country: PT (occurrence: PT)
  Receive Date: 20180412
  Receipt Date: 20180629
  Transmission Date: 20180711
  Serious: Yes (Other)
  Sender: FDA-Public Use
  Company Number: PT-009507513-1804PRT001025

PATIENT
  Age: 56 Year
  Sex: Male

DRUGS (2)
  1. LISINOPRIL. [Suspect]
     Active Substance: LISINOPRIL
     Indication: ALBUMINURIA
  2. LISINOPRIL. [Suspect]
     Active Substance: LISINOPRIL
     Indication: HYPERKALAEMIA
     Dosage: 10 MG, QD
     Route: 048

REACTIONS (6)
  - Renal tubular acidosis [Unknown]
  - Product use in unapproved indication [Unknown]
  - Acidosis hyperchloraemic [Unknown]
  - Hyperkalaemia [Recovering/Resolving]
  - Blood potassium increased [Unknown]
  - Condition aggravated [Recovering/Resolving]
